FAERS Safety Report 14430634 (Version 1)
Quarter: 2018Q1

REPORT INFORMATION
  Report Type: Spontaneous
  Country: US (occurrence: US)
  Receive Date: 20180124
  Receipt Date: 20180124
  Transmission Date: 20180509
  Serious: Yes (Other)
  Sender: FDA-Public Use
  Company Number: US-INGENUS PHARMACEUTICALS, LLC-INF201801-000054

PATIENT
  Age: 64 Year
  Sex: Male

DRUGS (4)
  1. QUININE [Suspect]
     Active Substance: QUININE
  2. AZITHROMYCIN ANHYDROUS. [Concomitant]
     Active Substance: AZITHROMYCIN ANHYDROUS
  3. ATOVAQUONE. [Concomitant]
     Active Substance: ATOVAQUONE
  4. CLINDAMYCIN. [Suspect]
     Active Substance: CLINDAMYCIN

REACTIONS (2)
  - Atrioventricular block [Unknown]
  - Bradycardia [Unknown]
